FAERS Safety Report 6715151-6 (Version None)
Quarter: 2010Q2

REPORT INFORMATION
  Report Type: 
  Country: None (occurrence: None)
  Receive Date: 20100507
  Receipt Date: 20100504
  Transmission Date: 20101027
  Serious: Yes (Other)
  Sender: FDA-Public Use
  Company Number: JP-PFIZER INC-2010055295

PATIENT
  Age: 53 Year
  Sex: Female

DRUGS (7)
  1. LIPITOR [Suspect]
     Indication: TYPE IIA HYPERLIPIDAEMIA
     Dosage: 30 MG, DAILY
     Route: 048
  2. MICARDIS [Concomitant]
  3. ARTIST [Concomitant]
  4. ALLOPURINOL [Concomitant]
     Route: 048
  5. FERROMIA [Concomitant]
     Route: 048
  6. SENNOSIDE A+B [Concomitant]
     Route: 048
  7. ALDACTONE [Concomitant]
     Dosage: UNK
     Route: 048
     Dates: start: 20100403

REACTIONS (4)
  - AORTIC VALVE STENOSIS [None]
  - BLOOD CREATINE PHOSPHOKINASE INCREASED [None]
  - BLOOD CREATININE INCREASED [None]
  - MUSCULAR WEAKNESS [None]
